FAERS Safety Report 7054967-6 (Version None)
Quarter: 2010Q4

REPORT INFORMATION
  Report Type: 
  Country: None (occurrence: None)
  Receive Date: 20101021
  Receipt Date: 20101012
  Transmission Date: 20110411
  Serious: Yes (Death, Other)
  Sender: FDA-Public Use
  Company Number: DE-ELI_LILLY_AND_COMPANY-DE201010003336

PATIENT
  Age: 66 Year
  Sex: Male

DRUGS (12)
  1. GEMZAR [Suspect]
     Indication: NON-SMALL CELL LUNG CANCER
     Dosage: 150 MG/M2, WEEKLY (1/W)
     Route: 042
  2. GEMZAR [Suspect]
     Dosage: 225 MG/M2, WEEKLY (1/W)
     Route: 042
  3. GEMZAR [Suspect]
     Dosage: 300 MG/M2, WEEKLY (1/W)
     Route: 042
  4. GEMZAR [Suspect]
     Dosage: 350 MG/M2, WEEKLY (1/W)
     Route: 042
  5. GEMZAR [Suspect]
     Dosage: 400 MG/M2, WEEKLY (1/W)
     Route: 042
  6. GEMZAR [Suspect]
     Dosage: 450 MG/M2, WEEKLY (1/W)
     Route: 042
  7. GEMZAR [Suspect]
     Dosage: 500 MG/M2, WEEKLY (1/W)
     Route: 042
  8. GEMZAR [Suspect]
     Dosage: 550 MG/M2, WEEKLY (1/W)
     Route: 042
  9. GEMZAR [Suspect]
     Dosage: 625 MG/M2, WEEKLY (1/W)
     Route: 042
  10. GEMZAR [Suspect]
     Dosage: 700 MG/M2, WEEKLY (1/W)
     Route: 042
  11. GEMZAR [Suspect]
     Dosage: 775 MG/M2, WEEKLY (1/W)
     Route: 042
  12. CISPLATIN [Concomitant]
     Indication: NON-SMALL CELL LUNG CANCER
     Dosage: 20 MG/M2, DAY 1 TO 3 IN WEEKS 1 AND 5
     Route: 065

REACTIONS (3)
  - ACUTE RESPIRATORY DISTRESS SYNDROME [None]
  - NAUSEA [None]
  - PNEUMONECTOMY [None]
